FAERS Safety Report 11043569 (Version 2)
Quarter: 2015Q2

REPORT INFORMATION
  Report Type: Spontaneous
  Country: CZ (occurrence: CZ)
  Receive Date: 20150417
  Receipt Date: 20150505
  Transmission Date: 20150821
  Serious: Yes (Other)
  Sender: FDA-Public Use
  Company Number: CZ-ELI_LILLY_AND_COMPANY-CZ201504002127

PATIENT
  Sex: Male

DRUGS (4)
  1. ZOCOR [Concomitant]
     Active Substance: SIMVASTATIN
     Indication: HYPERLIPIDAEMIA
     Dosage: UNK, UNKNOWN
     Route: 065
  2. CIALIS [Suspect]
     Active Substance: TADALAFIL
     Indication: ERECTILE DYSFUNCTION
     Dosage: 20 MG, PRN
     Route: 048
     Dates: start: 2012, end: 20150405
  3. MICARDIS [Concomitant]
     Active Substance: TELMISARTAN
     Indication: HYPERTENSION
     Dosage: UNK, UNKNOWN
     Route: 065
  4. CIALIS [Suspect]
     Active Substance: TADALAFIL
     Dosage: UNK UNK, UNKNOWN
     Route: 065
     Dates: start: 20150405, end: 20150405

REACTIONS (4)
  - Macule [Not Recovered/Not Resolved]
  - Urticaria [Unknown]
  - Basal cell carcinoma [Unknown]
  - Rash pruritic [Recovering/Resolving]

NARRATIVE: CASE EVENT DATE: 2013
